FAERS Safety Report 4499194-1 (Version None)
Quarter: 2004Q4

REPORT INFORMATION
  Report Type: 
  Country: None (occurrence: None)
  Receive Date: 20041111
  Receipt Date: 20041009
  Transmission Date: 20050328
  Serious: Yes (Other)
  Sender: FDA-Public Use
  Company Number: PHBS2004BE13551

PATIENT
  Age: 57 Year
  Sex: Female

DRUGS (3)
  1. VOLTAREN [Suspect]
     Indication: SCIATICA
     Dosage: 75 MG/DAY
     Route: 030
     Dates: start: 20040801
  2. SOTALEX [Concomitant]
     Indication: HYPERTENSION
  3. CELEBREX [Concomitant]
     Indication: SCIATICA

REACTIONS (6)
  - EMBOLIA CUTIS MEDICAMENTOSA [None]
  - INJECTION SITE ABSCESS [None]
  - INJECTION SITE INDURATION [None]
  - INJECTION SITE NECROSIS [None]
  - INJECTION SITE PAIN [None]
  - INJECTION SITE ULCER [None]
